FAERS Safety Report 12770048 (Version 1)
Quarter: 2016Q3

REPORT INFORMATION
  Report Type: Spontaneous
  Country: US (occurrence: US)
  Receive Date: 20160922
  Receipt Date: 20160922
  Transmission Date: 20161109
  Serious: Yes (Other)
  Sender: FDA-Public Use
  Company Number: US-LUPIN PHARMACEUTICALS INC.-2016-04227

PATIENT
  Sex: Female

DRUGS (1)
  1. AMLODIPINE, VALSARTAN, AND HYDROCHLOROTHIAZIDE [Suspect]
     Active Substance: AMLODIPINE BESYLATE\HYDROCHLOROTHIAZIDE\VALSARTAN
     Indication: BLOOD PRESSURE ABNORMAL
     Dosage: TAKES HALF OF A 10-320-25 DOSE.
     Route: 048
     Dates: start: 2016

REACTIONS (4)
  - Vomiting [Unknown]
  - Retching [Unknown]
  - Choking [Unknown]
  - Wrong technique in product usage process [Unknown]
